FAERS Safety Report 5692383-X (Version None)
Quarter: 2008Q2

REPORT INFORMATION
  Report Type: 
  Country: None (occurrence: None)
  Receive Date: 20080402
  Receipt Date: 20070416
  Transmission Date: 20081010
  Serious: Yes (Other)
  Sender: FDA-Public Use
  Company Number: US-BAYER-US-2006-035487

PATIENT
  Age: 64 Year
  Sex: Male

DRUGS (3)
  1. LEUKINE [Suspect]
     Indication: COLONY STIMULATING FACTOR PROPHYLAXIS
     Dosage: UNIT DOSE: 500 ?G
     Route: 058
     Dates: start: 20060914, end: 20060914
  2. FENTANYL [Concomitant]
  3. MORPHINE [Concomitant]
     Route: 048

REACTIONS (2)
  - HYPERHIDROSIS [None]
  - HYPOTENSION [None]
